FAERS Safety Report 7319025-1 (Version None)
Quarter: 2011Q1

REPORT INFORMATION
  Report Type: 
  Country: None (occurrence: None)
  Receive Date: 20110228
  Receipt Date: 20110221
  Transmission Date: 20110831
  Serious: Yes (Hospitalization, Other)
  Sender: FDA-Public Use
  Company Number: US-AMGEN-USASP2010001309

PATIENT
  Age: 58 Year
  Sex: Male

DRUGS (32)
  1. VINCRISTINE [Concomitant]
  2. AMICAR [Concomitant]
     Dosage: UNK UNK, QH
     Route: 048
  3. PREDNISONE [Concomitant]
  4. DIGOXIN [Concomitant]
     Dosage: .125 MG, QD
     Route: 048
  5. AMINOCAPROIC ACID [Concomitant]
     Dosage: 16 ML, Q6H
     Route: 048
  6. NEXIUM [Concomitant]
     Dosage: 40 MG, UNK
  7. METOPROLOL SUCCINATE [Concomitant]
     Dosage: 12.5 MG, UNK
  8. BIOTENE                            /00203502/ [Concomitant]
     Dosage: 5 ML, UNK
     Route: 048
  9. TYLENOL (CAPLET) [Concomitant]
  10. NPLATE [Suspect]
     Indication: IDIOPATHIC THROMBOCYTOPENIC PURPURA
     Dosage: 10 A?G/KG, QWK
     Route: 058
     Dates: start: 20100217, end: 20100706
  11. CELL CEPT [Concomitant]
  12. COUMADIN [Concomitant]
  13. CORTICOSTEROIDS [Concomitant]
  14. DEXAMETHASONE                      /00016002/ [Concomitant]
     Dosage: 40 UNK, UNK
     Route: 042
     Dates: start: 20100506
  15. COMBIVENT [Concomitant]
  16. MEPERIDINE HCL                     /00016301/ [Concomitant]
     Dosage: 25 MG/ML, UNK
  17. IMMUNOGLOBULINS [Concomitant]
     Dosage: UNK
     Dates: start: 20090514
  18. PANTOPRAZOLE [Concomitant]
     Dosage: 40 MG, BID
     Route: 048
  19. ACYCLOVIR [Concomitant]
     Dosage: 400 MG, BID
     Route: 048
  20. FLUCONAZOLE [Concomitant]
     Dosage: 200 MG, QD
     Route: 048
  21. MYCOPHENOLATE [Concomitant]
     Dosage: 500 MG, BID
     Route: 048
  22. SUCRALFATE [Concomitant]
     Dosage: UNK UNK, QID
     Route: 048
  23. LIPITOR [Concomitant]
     Dosage: 40 MG, QD
     Route: 048
  24. RED BLOOD CELLS [Concomitant]
  25. DOCUSATE SODIUM [Concomitant]
  26. INSULIN [Concomitant]
     Dosage: 8 UNK, UNK
  27. STEROID ANTIBACTERIALS [Concomitant]
  28. HEPARIN [Concomitant]
  29. RITUXAN [Concomitant]
  30. POTASSIUM CHLORIDE [Concomitant]
  31. COUGH SUPPRESSANTS EXCL. COMB. WITH EXPECTORA [Concomitant]
  32. CODEINE [Concomitant]

REACTIONS (26)
  - PNEUMONIA [None]
  - ORTHOSTATIC HYPOTENSION [None]
  - HAEMATURIA [None]
  - DIABETES MELLITUS [None]
  - MYALGIA [None]
  - HYPOKALAEMIA [None]
  - DEPRESSION [None]
  - PRODUCTIVE COUGH [None]
  - PLEURAL EFFUSION [None]
  - URINARY INCONTINENCE [None]
  - SYNCOPE [None]
  - EPISTAXIS [None]
  - ANAEMIA [None]
  - DEEP VEIN THROMBOSIS [None]
  - DYSPNOEA [None]
  - MELAENA [None]
  - RESTLESS LEGS SYNDROME [None]
  - DIZZINESS POSTURAL [None]
  - MYOCARDIAL INFARCTION [None]
  - PETECHIAE [None]
  - THROMBOCYTOPENIA [None]
  - CORONARY ARTERY DISEASE [None]
  - ATRIAL FIBRILLATION [None]
  - URINARY TRACT INFECTION [None]
  - GASTROOESOPHAGEAL REFLUX DISEASE [None]
  - GASTROINTESTINAL HAEMORRHAGE [None]
